FAERS Safety Report 18824984 (Version 2)
Quarter: 2021Q2

REPORT INFORMATION
  Report Type: Spontaneous
  Country: US (occurrence: US)
  Receive Date: 20210202
  Receipt Date: 20210412
  Transmission Date: 20210717
  Serious: No
  Sender: FDA-Public Use
  Company Number: US-PFIZER INC-2021085706

PATIENT
  Age: 65 Year
  Sex: Female

DRUGS (1)
  1. XELJANZ XR [Suspect]
     Active Substance: TOFACITINIB CITRATE
     Dosage: 11 MG
     Dates: start: 20201229

REACTIONS (4)
  - Drug ineffective [Unknown]
  - Musculoskeletal stiffness [Unknown]
  - Urinary tract infection [Recovered/Resolved]
  - Joint stiffness [Unknown]

NARRATIVE: CASE EVENT DATE: 2021
